FAERS Safety Report 7390727-4 (Version None)
Quarter: 2011Q2

REPORT INFORMATION
  Report Type: 
  Country: None (occurrence: None)
  Receive Date: 20110404
  Receipt Date: 20110323
  Transmission Date: 20111010
  Serious: No
  Sender: FDA-Public Use
  Company Number: US-BIOGENIDEC-2011BI011288

PATIENT
  Age: 38 Year
  Sex: Male

DRUGS (4)
  1. AVONEX [Concomitant]
     Indication: MULTIPLE SCLEROSIS
     Route: 030
     Dates: start: 20081001
  2. AVONEX [Concomitant]
     Route: 030
     Dates: start: 19990101, end: 20070606
  3. TYSABRI [Suspect]
     Indication: MULTIPLE SCLEROSIS
     Route: 042
     Dates: start: 20071029, end: 20110202
  4. TYSABRI [Suspect]
     Route: 042
     Dates: start: 20050121

REACTIONS (2)
  - HEPATIC ENZYME INCREASED [None]
  - STAPHYLOCOCCAL INFECTION [None]
